FAERS Safety Report 12494194 (Version 4)
Quarter: 2016Q3

REPORT INFORMATION
  Report Type: Report from Study
  Country: CN (occurrence: CN)
  Receive Date: 20160623
  Receipt Date: 20160802
  Transmission Date: 20161109
  Serious: Yes (Hospitalization, Other)
  Sender: FDA-Public Use
  Company Number: CN-ASTRAZENECA-2016SE49258

PATIENT
  Age: 68 Year
  Sex: Female

DRUGS (6)
  1. ACARBOSE. [Concomitant]
     Active Substance: ACARBOSE
     Route: 048
     Dates: start: 2006, end: 20151208
  2. METFORMIN [Concomitant]
     Active Substance: METFORMIN HYDROCHLORIDE
     Route: 048
  3. NOVONORM [Concomitant]
     Active Substance: REPAGLINIDE
     Route: 048
     Dates: start: 2006, end: 20151208
  4. BYETTA [Suspect]
     Active Substance: EXENATIDE
     Indication: DIABETES MELLITUS
     Route: 058
     Dates: start: 20151208, end: 20160108
  5. BYETTA [Suspect]
     Active Substance: EXENATIDE
     Indication: DIABETES MELLITUS
     Route: 058
     Dates: start: 20160109, end: 20160430
  6. INSULIN [Concomitant]
     Active Substance: INSULIN NOS
     Dosage: 24 UNITS IN THE MORNING, 26 UNITS IN THE EVENING BEFORE RECEIVING BYETTA, AND DECREASED THE DOSE ...

REACTIONS (9)
  - Head discomfort [Recovered/Resolved]
  - Nausea [Recovered/Resolved]
  - Dizziness [Unknown]
  - Blood glucose increased [Unknown]
  - Fatigue [Recovering/Resolving]
  - Coronary artery occlusion [Unknown]
  - Vomiting [Recovered/Resolved]
  - Glycosylated haemoglobin increased [Unknown]
  - Decreased appetite [Unknown]

NARRATIVE: CASE EVENT DATE: 20151208
